FAERS Safety Report 12092355 (Version 1)
Quarter: 2016Q1

REPORT INFORMATION
  Report Type: Spontaneous
  Country: US (occurrence: None)
  Receive Date: 20160217
  Receipt Date: 20160217
  Transmission Date: 20160526
  Serious: Yes (Other)
  Sender: FDA-Public Use
  Company Number: None

PATIENT
  Age: 27 Year
  Sex: Female

DRUGS (13)
  1. AMBIE [Concomitant]
  2. NEURONTIN [Concomitant]
     Active Substance: GABAPENTIN
  3. ZOFRAN ODT [Concomitant]
     Active Substance: ONDANSETRON HYDROCHLORIDE
  4. ZECUITY [Suspect]
     Active Substance: SUMATRIPTAN SUCCINATE
     Indication: MIGRAINE
     Route: 061
     Dates: start: 20151104
  5. NUVAGIL [Concomitant]
  6. DIAZEPAM. [Concomitant]
     Active Substance: DIAZEPAM
  7. BOTOX [Concomitant]
     Active Substance: ONABOTULINUMTOXINA
  8. OXYCODONE [Concomitant]
     Active Substance: OXYCODONE
  9. ZANAFLEX [Concomitant]
     Active Substance: TIZANIDINE HYDROCHLORIDE
  10. ULTRAM [Concomitant]
     Active Substance: TRAMADOL HYDROCHLORIDE
  11. WELLBUTRIN [Concomitant]
     Active Substance: BUPROPION HYDROCHLORIDE
  12. XOPENEX [Concomitant]
     Active Substance: LEVALBUTEROL HYDROCHLORIDE
  13. ZOCOR [Concomitant]
     Active Substance: SIMVASTATIN

REACTIONS (3)
  - Product physical issue [None]
  - Product quality issue [None]
  - Headache [None]

NARRATIVE: CASE EVENT DATE: 20151104
